FAERS Safety Report 10102457 (Version 2)
Quarter: 2014Q2

REPORT INFORMATION
  Report Type: Other
  Country: US (occurrence: US)
  Receive Date: 20140424
  Receipt Date: 20140624
  Transmission Date: 20141212
  Serious: Yes (Hospitalization, Other)
  Sender: FDA-Public Use
  Company Number: US-GSKPPD-2014GSK000275

PATIENT
  Age: 64 Year
  Sex: Female

DRUGS (2)
  1. AVANDIA [Suspect]
     Indication: DIABETES MELLITUS
     Dosage: DATE OF AVANDIA USE COULD NOT BE CONFIRMED IN RECORDS REVIEWED
     Route: 048
  2. AVANDAMET [Suspect]
     Indication: DIABETES MELLITUS
     Dosage: DATE OF AVANDAMET USE COULD NOT BE CONFIRMED IN RECORDS REVIEWED

REACTIONS (1)
  - Myocardial infarction [Recovered/Resolved]
